FAERS Safety Report 5944197-0 (Version None)
Quarter: 2008Q4

REPORT INFORMATION
  Report Type: 
  Country: None (occurrence: None)
  Receive Date: 20081106
  Receipt Date: 20081029
  Transmission Date: 20090506
  Serious: Yes (Other)
  Sender: FDA-Public Use
  Company Number: PH-MERCK-0807PHL00021

PATIENT
  Age: 77 Year
  Sex: Female

DRUGS (2)
  1. FOSAMAX PLUS D [Suspect]
     Indication: OSTEOPOROSIS
     Route: 048
     Dates: start: 20080422, end: 20080422
  2. ETORICOXIB [Concomitant]
     Indication: BACK PAIN
     Route: 048

REACTIONS (3)
  - CHEST PAIN [None]
  - TRANSIENT ISCHAEMIC ATTACK [None]
  - VOMITING [None]
